FAERS Safety Report 8594702-3 (Version None)
Quarter: 2012Q3

REPORT INFORMATION
  Report Type: 
  Country: None (occurrence: None)
  Receive Date: 20120815
  Receipt Date: 20120813
  Transmission Date: 20120928
  Serious: Yes (Life-Threatening)
  Sender: FDA-Public Use
  Company Number: AU-B.I. PHARMACEUTICALS,INC./RIDGEFIELD-2012-AU-01392AU

PATIENT
  Sex: Male
  Weight: 70 kg

DRUGS (2)
  1. RIKODEINE [Concomitant]
     Dosage: 10 ML
  2. SPIRIVA [Suspect]
     Dosage: 1 DAILY
     Dates: start: 20090429

REACTIONS (7)
  - COUGH [None]
  - DYSPNOEA [None]
  - FEAR OF DEATH [None]
  - DYSPEPSIA [None]
  - EATING DISORDER SYMPTOM [None]
  - LIGAMENT SPRAIN [None]
  - HEADACHE [None]
